FAERS Safety Report 6007463-9 (Version None)
Quarter: 2008Q4

REPORT INFORMATION
  Report Type: 
  Country: None (occurrence: None)
  Receive Date: 20081217
  Receipt Date: 20080424
  Transmission Date: 20090506
  Serious: No
  Sender: FDA-Public Use
  Company Number: US-ASTRAZENECA-2008UW08334

PATIENT
  Age: 58 Year
  Sex: Female
  Weight: 79.8 kg

DRUGS (6)
  1. CRESTOR [Suspect]
     Indication: BLOOD CHOLESTEROL INCREASED
     Route: 048
  2. ESTROTEST [Concomitant]
  3. HYZAAR [Concomitant]
  4. SYNTHROID [Concomitant]
  5. NEXIUM [Concomitant]
     Route: 048
  6. CYTOMEL [Concomitant]
     Route: 048

REACTIONS (2)
  - ABDOMINAL DISTENSION [None]
  - FLATULENCE [None]
